FAERS Safety Report 13001854 (Version 1)
Quarter: 2016Q4

REPORT INFORMATION
  Report Type: Spontaneous
  Country: US (occurrence: US)
  Receive Date: 20161206
  Receipt Date: 20161206
  Transmission Date: 20170207
  Serious: Yes (Hospitalization, Other)
  Sender: FDA-Public Use
  Company Number: US-DRREDDYS-USA/USA/16/0085163

PATIENT
  Age: 72 Year
  Sex: Female

DRUGS (2)
  1. ZONISAMIDE. [Suspect]
     Active Substance: ZONISAMIDE
     Indication: MIGRAINE PROPHYLAXIS
     Route: 065
  2. ZONISAMIDE. [Suspect]
     Active Substance: ZONISAMIDE
     Indication: PROPHYLAXIS

REACTIONS (6)
  - Nystagmus [Recovered/Resolved]
  - Off label use [Recovered/Resolved]
  - Dysmetria [Recovered/Resolved]
  - Dizziness [Recovered/Resolved]
  - Diplopia [Recovered/Resolved]
  - Ataxia [Recovered/Resolved]
